FAERS Safety Report 8934830 (Version 1)
Quarter: 2012Q4

REPORT INFORMATION
  Report Type: 
  Country: CA (occurrence: CA)
  Receive Date: 20121129
  Receipt Date: 20121129
  Transmission Date: 20130627
  Serious: Yes (Other)
  Sender: FDA-Public Use
  Company Number: CA-ABBOTT-12P-028-1015350-00

PATIENT

DRUGS (3)
  1. LOPINAVIR/RITONAVIR [Suspect]
     Indication: HIV INFECTION
  2. VINBLASTINE [Suspect]
     Indication: HIV INFECTION
  3. VINBLASTINE [Suspect]
     Indication: HODGKIN^S DISEASE

REACTIONS (1)
  - Haematotoxicity [Unknown]
